FAERS Safety Report 17272006 (Version 1)
Quarter: 2020Q1

REPORT INFORMATION
  Report Type: Spontaneous
  Country: CN (occurrence: CN)
  Receive Date: 20200115
  Receipt Date: 20200115
  Transmission Date: 20200409
  Serious: Yes (Other)
  Sender: FDA-Public Use
  Company Number: CN-PFIZER INC-2020011476

PATIENT
  Age: 45 Year
  Sex: Male
  Weight: 68 kg

DRUGS (5)
  1. RE DU NING ZHU SHE YE [Suspect]
     Active Substance: HERBALS
     Dosage: UNK, ONCE A DAY (QD)
     Route: 041
     Dates: start: 20191224, end: 20191227
  2. CEFTRIAXONE SODIUM. [Suspect]
     Active Substance: CEFTRIAXONE SODIUM
     Dosage: 2 G, 1X/DAY
     Dates: start: 20191224, end: 20191230
  3. CELECOXIB. [Suspect]
     Active Substance: CELECOXIB
     Indication: PAIN
     Dosage: 0.2 G, 2X/DAY
     Route: 048
     Dates: start: 20191224, end: 20191231
  4. NORMAL SALINE [Concomitant]
     Active Substance: SODIUM CHLORIDE
     Dosage: UNK, ONCE A DAY (QD)
     Dates: start: 20191224, end: 20191227
  5. NORMAL SALINE [Concomitant]
     Active Substance: SODIUM CHLORIDE
     Dosage: UNK, ONCE A DAY (QD)
     Dates: start: 20191224, end: 20191230

REACTIONS (12)
  - Pruritus [Recovering/Resolving]
  - Erythema [Recovering/Resolving]
  - Drug hypersensitivity [Recovering/Resolving]
  - Rash macular [Recovering/Resolving]
  - Penile erythema [Recovering/Resolving]
  - Papule [Recovering/Resolving]
  - Swelling [Recovering/Resolving]
  - Skin hypertrophy [Recovering/Resolving]
  - Feeling hot [Recovering/Resolving]
  - Penile swelling [Recovering/Resolving]
  - Urticaria [Recovering/Resolving]
  - Skin oedema [Recovering/Resolving]

NARRATIVE: CASE EVENT DATE: 20191227
